FAERS Safety Report 11646285 (Version 2)
Quarter: 2016Q2

REPORT INFORMATION
  Report Type: Spontaneous
  Country: US (occurrence: US)
  Receive Date: 20151020
  Receipt Date: 20160504
  Transmission Date: 20160815
  Serious: No
  Sender: FDA-Public Use
  Company Number: US-ROCHE-ITM201504IM014642

PATIENT
  Sex: Female
  Weight: 81.72 kg

DRUGS (3)
  1. ESBRIET [Suspect]
     Active Substance: PIRFENIDONE
     Route: 048
  2. PREDNISONE. [Concomitant]
     Active Substance: PREDNISONE
  3. ESBRIET [Suspect]
     Active Substance: PIRFENIDONE
     Indication: IDIOPATHIC PULMONARY FIBROSIS
     Dosage: 3 CAPSUES THRICE A DAY WITH FOOD
     Route: 048
     Dates: start: 20150424

REACTIONS (5)
  - Upper respiratory tract infection [Unknown]
  - Headache [Unknown]
  - Sputum increased [Unknown]
  - Nasopharyngitis [Unknown]
  - Cough [Unknown]
